FAERS Safety Report 10462398 (Version 1)
Quarter: 2014Q3

REPORT INFORMATION
  Report Type: Spontaneous
  Country: VE (occurrence: VE)
  Receive Date: 20140918
  Receipt Date: 20140918
  Transmission Date: 20150326
  Serious: Yes (Other)
  Sender: FDA-Public Use
  Company Number: PHHY2014VE121402

PATIENT
  Sex: Male

DRUGS (1)
  1. TRILEPTAL [Suspect]
     Active Substance: OXCARBAZEPINE
     Dosage: 1200 MG, DAILY
     Route: 048

REACTIONS (7)
  - Diet refusal [Unknown]
  - Convulsion [Unknown]
  - Depressed mood [Unknown]
  - Asthenia [Unknown]
  - Anhedonia [Unknown]
  - Autism [Unknown]
  - Nervous system disorder [Unknown]

NARRATIVE: CASE EVENT DATE: 20140916
